FAERS Safety Report 16086676 (Version 2)
Quarter: 2019Q2

REPORT INFORMATION
  Report Type: Spontaneous
  Country: US (occurrence: US)
  Receive Date: 20190318
  Receipt Date: 20190402
  Transmission Date: 20190711
  Serious: No
  Sender: FDA-Public Use
  Company Number: PHHY2019US047643

PATIENT
  Sex: Female

DRUGS (1)
  1. ZADITOR [Suspect]
     Active Substance: KETOTIFEN FUMARATE
     Indication: CONJUNCTIVITIS
     Dosage: UNK
     Route: 047
     Dates: start: 20190216, end: 20190223

REACTIONS (6)
  - Eye pruritus [Recovered/Resolved]
  - Eyelid margin crusting [Recovered/Resolved]
  - Eye irritation [Recovered/Resolved]
  - Eye infection [Recovered/Resolved]
  - Ocular hyperaemia [Recovered/Resolved]
  - Product quality issue [Unknown]

NARRATIVE: CASE EVENT DATE: 20190225
